FAERS Safety Report 18361981 (Version 1)
Quarter: 2020Q4

REPORT INFORMATION
  Report Type: Spontaneous
  Country: AU (occurrence: AU)
  Receive Date: 20201008
  Receipt Date: 20201008
  Transmission Date: 20210114
  Serious: Yes (Life-Threatening)
  Sender: FDA-Public Use
  Company Number: AU-FRESENIUS KABI-FK202010408

PATIENT
  Age: 31 Year
  Sex: Female

DRUGS (2)
  1. BUPIVACAINE (MANUFACTURER UNKNOWN) [Suspect]
     Active Substance: BUPIVACAINE
     Indication: SPINAL ANAESTHESIA
     Route: 037
  2. FENTANYL (MANUFACTURER UNKNOWN) [Suspect]
     Active Substance: FENTANYL
     Indication: SPINAL ANAESTHESIA
     Route: 037

REACTIONS (2)
  - Subdural haematoma [Recovered/Resolved]
  - Exposure during pregnancy [Recovered/Resolved]
